FAERS Safety Report 11450501 (Version 1)
Quarter: 2015Q3

REPORT INFORMATION
  Report Type: Spontaneous
  Country: US (occurrence: US)
  Receive Date: 20150903
  Receipt Date: 20150903
  Transmission Date: 20151125
  Serious: No
  Sender: FDA-Public Use
  Company Number: US-ROCHE-1051967

PATIENT
  Sex: Female

DRUGS (4)
  1. PEGASYS [Suspect]
     Active Substance: PEGINTERFERON ALFA-2A
     Indication: CHRONIC HEPATITIS C
     Route: 058
     Dates: start: 20120314
  2. LOTIONS [Concomitant]
  3. INCIVEK [Suspect]
     Active Substance: TELAPREVIR
     Indication: CHRONIC HEPATITIS C
     Route: 065
     Dates: start: 20120314
  4. RIBASPHERE RIBAPAK [Suspect]
     Active Substance: RIBAVIRIN
     Indication: CHRONIC HEPATITIS C
     Dosage: BRAND: THREE RIVERS
     Route: 048
     Dates: start: 20120314

REACTIONS (11)
  - Pruritus [Unknown]
  - Injection site erythema [Unknown]
  - Eructation [Unknown]
  - Dysgeusia [Unknown]
  - Migraine [Unknown]
  - Injection site haemorrhage [Unknown]
  - Ammonia increased [Unknown]
  - Diarrhoea [Unknown]
  - Rash [Unknown]
  - Epistaxis [Recovered/Resolved]
  - Dyspepsia [Unknown]
